FAERS Safety Report 6227483-9 (Version None)
Quarter: 2009Q2

REPORT INFORMATION
  Report Type: 
  Country: None (occurrence: None)
  Receive Date: 20090612
  Receipt Date: 20090603
  Transmission Date: 20091009
  Serious: Yes (Other)
  Sender: FDA-Public Use
  Company Number: PHHY2009DE05993

PATIENT
  Sex: Female
  Weight: 66 kg

DRUGS (4)
  1. ACLASTA [Suspect]
     Indication: OSTEOPOROSIS
     Dosage: 5 MG/ 100 ML
     Route: 042
     Dates: start: 20081106, end: 20081106
  2. CRATAEGUTT NOVO [Concomitant]
  3. TEBONIN [Concomitant]
  4. DOCITON [Concomitant]

REACTIONS (10)
  - ARTHRALGIA [None]
  - CHILLS [None]
  - DERMATITIS BULLOUS [None]
  - ERYTHEMA [None]
  - JOINT SWELLING [None]
  - MUSCULOSKELETAL PAIN [None]
  - PRURITUS [None]
  - PYREXIA [None]
  - RASH [None]
  - SKIN EXFOLIATION [None]
